FAERS Safety Report 4613853-9 (Version None)
Quarter: 2005Q1

REPORT INFORMATION
  Report Type: 
  Country: None (occurrence: None)
  Receive Date: 20050315
  Receipt Date: 20050228
  Transmission Date: 20050727
  Serious: Yes (Other)
  Sender: FDA-Public Use
  Company Number: 2005-BP-03089BR

PATIENT
  Age: 78 Year
  Sex: Female

DRUGS (3)
  1. MICARDIS HCT (TA) [Suspect]
     Indication: HYPERTENSION
     Dosage: 40/12.5 MG (SEE TEXT, 1 TA OAD (STRENGTH: 40/12.5 MG) PO
     Route: 048
     Dates: start: 20030101
  2. BAMIFIX (BAMIFYLLINE HYDROCHLORIDE) [Concomitant]
  3. PRESSAT (AMLODIPINE) [Concomitant]

REACTIONS (5)
  - BLOOD PRESSURE SYSTOLIC INCREASED [None]
  - DIARRHOEA [None]
  - MYOCARDIAL INFARCTION [None]
  - THERAPEUTIC RESPONSE DECREASED [None]
  - VOMITING [None]
